FAERS Safety Report 17689881 (Version 1)
Quarter: 2020Q2

REPORT INFORMATION
  Report Type: Report from Study
  Country: US (occurrence: US)
  Receive Date: 20200421
  Receipt Date: 20200421
  Transmission Date: 20200714
  Serious: Yes (Death, Hospitalization)
  Sender: FDA-Public Use
  Company Number: US-ACTELION-A-NJ2019-195660

PATIENT
  Age: 68 Year
  Sex: Male
  Weight: 73.47 kg

DRUGS (3)
  1. OPSUMIT [Suspect]
     Active Substance: MACITENTAN
     Indication: PULMONARY ARTERIAL HYPERTENSION
     Dosage: 10 MG, QD
     Route: 048
     Dates: end: 20200407
  2. TYVASO [Suspect]
     Active Substance: TREPROSTINIL
     Indication: PRODUCT USED FOR UNKNOWN INDICATION
     Route: 065
  3. ADEMPAS [Concomitant]
     Active Substance: RIOCIGUAT

REACTIONS (12)
  - Weight decreased [Unknown]
  - Adverse event [Unknown]
  - Scratch [Unknown]
  - Dizziness [Unknown]
  - Product dose omission [Unknown]
  - Peripheral swelling [Unknown]
  - Hypotension [Unknown]
  - Syncope [Unknown]
  - Death [Fatal]
  - Fluid overload [Recovering/Resolving]
  - Oxygen saturation decreased [Unknown]
  - Loss of consciousness [Unknown]

NARRATIVE: CASE EVENT DATE: 20191217
